FAERS Safety Report 9158872 (Version 1)
Quarter: 2013Q1

REPORT INFORMATION
  Report Type: Spontaneous
  Country: DK (occurrence: None)
  Receive Date: 20130211
  Receipt Date: 20130211
  Transmission Date: 20140127
  Serious: Yes (Hospitalization)
  Sender: FDA-Public Use
  Company Number: 2013MA000907

PATIENT
  Age: 68 Year
  Sex: Female

DRUGS (5)
  1. METFORMIN HYDROCHLORIDE [Suspect]
     Route: 048
  2. PREDNISOLONE [Suspect]
     Indication: ASTHMA
  3. THEOPHYLLINE [Suspect]
  4. SINGULAIR [Suspect]
     Indication: ASTHMA
  5. FLIXOTIDE [Suspect]

REACTIONS (2)
  - Peritonitis bacterial [None]
  - Escherichia test positive [None]
